FAERS Safety Report 8799071 (Version 1)
Quarter: 2012Q4

REPORT INFORMATION
  Report Type: 
  Country: US (occurrence: US)
  Receive Date: 20120920
  Receipt Date: 20120920
  Transmission Date: 20130627
  Serious: Yes (Hospitalization)
  Sender: FDA-Public Use
  Company Number: US-ASTRAZENECA-2011SE58958

PATIENT
  Sex: Female

DRUGS (1)
  1. ZESTRIL [Suspect]
     Route: 048

REACTIONS (2)
  - Dizziness [Unknown]
  - Asthenia [Unknown]
